FAERS Safety Report 4270783-2 (Version None)
Quarter: 2004Q1

REPORT INFORMATION
  Report Type: 
  Country: None (occurrence: None)
  Receive Date: 20040114
  Receipt Date: 20030828
  Transmission Date: 20041129
  Serious: Yes (Life-Threatening)
  Sender: FDA-Public Use
  Company Number: JP-ROCHE-345656

PATIENT
  Age: 75 Year
  Sex: Female
  Weight: 41 kg

DRUGS (14)
  1. ROCEPHIN [Suspect]
     Route: 041
     Dates: start: 20030813, end: 20030827
  2. GENTACIN [Concomitant]
     Route: 041
     Dates: start: 20030829, end: 20030831
  3. MINOMYCIN [Concomitant]
     Route: 041
     Dates: start: 20030829, end: 20030829
  4. DIFLUCAN [Concomitant]
     Route: 041
     Dates: start: 20030829, end: 20030829
  5. PENTCILLIN [Concomitant]
     Dosage: STOPPED 15TH AND RESTARTED ON 23RD. WITH HAEMODIALYSIS ONLY.
     Route: 041
     Dates: start: 20030813, end: 20030827
  6. NETILYN [Concomitant]
     Dosage: STOPPED 15TH AND RESTARTED ON 23RD. WITH HAEMODIALYSIS ONLY.
     Route: 041
     Dates: start: 20030813, end: 20030827
  7. TAKEPRON [Concomitant]
     Route: 048
     Dates: start: 20030804, end: 20030827
  8. BLOPRESS [Concomitant]
     Route: 048
     Dates: start: 20030804, end: 20030827
  9. WARFARIN SODIUM [Concomitant]
     Route: 048
     Dates: start: 20030804, end: 20030827
  10. ALFAROL [Concomitant]
     Route: 048
     Dates: start: 20030804, end: 20030827
  11. VASOLAN [Concomitant]
     Route: 048
     Dates: start: 20030804, end: 20030827
  12. AMLODIN [Concomitant]
     Route: 048
     Dates: start: 20030804, end: 20030827
  13. GRIMAC [Concomitant]
     Route: 048
     Dates: start: 20030804, end: 20030827
  14. DIAZEPAM [Concomitant]
     Route: 048
     Dates: start: 20030801, end: 20030808

REACTIONS (6)
  - BLOOD PRESSURE DECREASED [None]
  - CEREBROSCLEROSIS [None]
  - DEPRESSED LEVEL OF CONSCIOUSNESS [None]
  - MYOCARDIAL INFARCTION [None]
  - VENTRICULAR FIBRILLATION [None]
  - VENTRICULAR TACHYCARDIA [None]
